FAERS Safety Report 13201072 (Version 1)
Quarter: 2017Q1

REPORT INFORMATION
  Report Type: Spontaneous
  Country: US (occurrence: US)
  Receive Date: 20170209
  Receipt Date: 20170209
  Transmission Date: 20170428
  Serious: No
  Sender: FDA-Public Use
  Company Number: US-TEVA-696360USA

PATIENT
  Age: 61 Year
  Sex: Male
  Weight: 79.45 kg

DRUGS (2)
  1. TESTOSTERONE. [Suspect]
     Active Substance: TESTOSTERONE
     Indication: BLOOD TESTOSTERONE DECREASED
     Dosage: 1%
     Route: 065
     Dates: start: 20160720
  2. TESTOSTERONE. [Suspect]
     Active Substance: TESTOSTERONE
     Dosage: 1%
     Route: 065
     Dates: start: 20160720

REACTIONS (6)
  - Blood oestrogen increased [Unknown]
  - Incorrect product storage [Unknown]
  - Red blood cell count increased [Unknown]
  - Headache [Recovered/Resolved]
  - Diarrhoea [Unknown]
  - Intentional product misuse [Unknown]

NARRATIVE: CASE EVENT DATE: 2016
